FAERS Safety Report 6902797-5 (Version None)
Quarter: 2010Q3

REPORT INFORMATION
  Report Type: 
  Country: None (occurrence: None)
  Receive Date: 20100803
  Receipt Date: 20080623
  Transmission Date: 20110219
  Serious: No
  Sender: FDA-Public Use
  Company Number: US-PFIZER INC-2008048114

PATIENT
  Sex: Male
  Weight: 111.4 kg

DRUGS (7)
  1. LYRICA [Suspect]
     Indication: NEUROPATHY PERIPHERAL
     Route: 048
     Dates: start: 20071001
  2. LYRICA [Suspect]
     Indication: FIBROMYALGIA
  3. OXYCODONE [Concomitant]
  4. GLIPIZIDE [Concomitant]
  5. METFORMIN HCL [Concomitant]
  6. ATENOLOL [Concomitant]
  7. ETODOLAC [Concomitant]

REACTIONS (2)
  - RASH [None]
  - SKIN DISORDER [None]
